FAERS Safety Report 14247034 (Version 3)
Quarter: 2018Q1

REPORT INFORMATION
  Report Type: Spontaneous
  Country: FR (occurrence: FR)
  Receive Date: 20171204
  Receipt Date: 20180114
  Transmission Date: 20180508
  Serious: Yes (Hospitalization, Other)
  Sender: FDA-Public Use
  Company Number: PHHY2017FR174787

PATIENT
  Age: 63 Year
  Sex: Male

DRUGS (5)
  1. CORTIVAZOL [Suspect]
     Active Substance: CORTIVAZOL
     Indication: TENOSYNOVITIS
  2. METHOTREXATE. [Suspect]
     Active Substance: METHOTREXATE
     Indication: RHEUMATOID ARTHRITIS
     Dosage: 20 MG, QW
     Route: 065
  3. CORTIVAZOL [Suspect]
     Active Substance: CORTIVAZOL
     Indication: ANTIFUNGAL TREATMENT
     Dosage: UNK
     Route: 065
  4. CORTIVAZOL [Suspect]
     Active Substance: CORTIVAZOL
     Indication: TENOSYNOVITIS
  5. PREDNISONE. [Suspect]
     Active Substance: PREDNISONE
     Indication: RHEUMATOID ARTHRITIS
     Dosage: 7 MG, QD
     Route: 065

REACTIONS (3)
  - Arthritis bacterial [Recovered/Resolved]
  - Tenosynovitis [Recovered/Resolved]
  - Phaehyphomycosis [Recovered/Resolved]

NARRATIVE: CASE EVENT DATE: 201304
